FAERS Safety Report 6008054-6 (Version None)
Quarter: 2008Q4

REPORT INFORMATION
  Report Type: 
  Country: None (occurrence: None)
  Receive Date: 20081217
  Receipt Date: 20080808
  Transmission Date: 20090506
  Serious: No
  Sender: FDA-Public Use
  Company Number: US-ASTRAZENECA-2008UW16333

PATIENT
  Sex: Female

DRUGS (2)
  1. CRESTOR [Suspect]
     Indication: ARTERIOSCLEROSIS
     Route: 048
     Dates: start: 20080201
  2. CRESTOR [Suspect]
     Route: 048

REACTIONS (2)
  - ARTERIOSCLEROSIS [None]
  - LOW DENSITY LIPOPROTEIN DECREASED [None]
